FAERS Safety Report 17265227 (Version 2)
Quarter: 2020Q2

REPORT INFORMATION
  Report Type: Spontaneous
  Country: US (occurrence: US)
  Receive Date: 20200114
  Receipt Date: 20200406
  Transmission Date: 20200713
  Serious: Yes (Other)
  Sender: FDA-Public Use
  Company Number: US-009507513-2001USA004005

PATIENT
  Sex: Female
  Weight: 79.37 kg

DRUGS (3)
  1. JANUVIA [Suspect]
     Active Substance: SITAGLIPTIN PHOSPHATE
     Indication: TYPE 2 DIABETES MELLITUS
     Dosage: ONCE DAILY
     Route: 048
     Dates: start: 2008, end: 20180628
  2. JANUMET [Suspect]
     Active Substance: METFORMIN HYDROCHLORIDE\SITAGLIPTIN PHOSPHATE
     Indication: TYPE 2 DIABETES MELLITUS
     Dosage: ONCE DAILY
     Route: 048
     Dates: start: 2008, end: 20180628
  3. LANTUS [Suspect]
     Active Substance: INSULIN GLARGINE
     Indication: TYPE 2 DIABETES MELLITUS
     Dosage: 5 INTERNATIONAL UNIT, AT BEDTIME

REACTIONS (19)
  - Pancreatic carcinoma recurrent [Not Recovered/Not Resolved]
  - Thyroid cancer [Unknown]
  - Cholecystectomy [Unknown]
  - Granuloma [Unknown]
  - Adnexa uteri cyst [Unknown]
  - Constipation [Unknown]
  - Gastric cancer [Unknown]
  - Pancreatic pseudocyst [Unknown]
  - Ovarian cyst [Unknown]
  - Sleep disorder [Unknown]
  - Hypersensitivity [Unknown]
  - Drug ineffective [Unknown]
  - Emotional distress [Unknown]
  - Diabetes mellitus inadequate control [Unknown]
  - Hernia repair [Unknown]
  - Pancreatic carcinoma [Recovered/Resolved]
  - Hypothyroidism [Unknown]
  - Spleen operation [Unknown]
  - Lymphadenopathy [Unknown]

NARRATIVE: CASE EVENT DATE: 2013
